FAERS Safety Report 5723675-3 (Version None)
Quarter: 2008Q2

REPORT INFORMATION
  Report Type: 
  Country: None (occurrence: None)
  Receive Date: 20080429
  Receipt Date: 20080429
  Transmission Date: 20081010
  Serious: No
  Sender: FDA-Public Use
  Company Number: None

PATIENT
  Age: 61 Year
  Sex: Male
  Weight: 77 kg

DRUGS (1)
  1. CIPRO IN DEXTROSE 5% [Suspect]
     Indication: SURGERY
     Dosage: 400MG ONCE IV
     Route: 042
     Dates: start: 20080327, end: 20080327

REACTIONS (2)
  - ANAPHYLACTIC REACTION [None]
  - RASH [None]
